FAERS Safety Report 9291558 (Version 3)
Quarter: 2013Q3

REPORT INFORMATION
  Report Type: Spontaneous
  Country: FR (occurrence: FR)
  Receive Date: 20130515
  Receipt Date: 20130701
  Transmission Date: 20140515
  Serious: Yes (Hospitalization, Congenital Anomaly)
  Sender: FDA-Public Use
  Company Number: FR-GILEAD-2013-0074807

PATIENT
  Sex: Female

DRUGS (8)
  1. TRUVADA [Suspect]
     Indication: HIV INFECTION
     Dosage: 1 DF, QD
     Route: 064
     Dates: start: 2012, end: 20130316
  2. KALETRA [Concomitant]
     Indication: HIV INFECTION
     Dosage: 2 DF, BID
     Route: 064
     Dates: start: 2012, end: 20130316
  3. ZANIDIP [Concomitant]
     Indication: HYPERTENSION
     Dosage: 10 MG, QD
     Route: 064
     Dates: start: 2012, end: 20130316
  4. UVEDOSE [Concomitant]
     Indication: VITAMIN D DEFICIENCY
     Dosage: UNK
     Route: 064
     Dates: start: 2012, end: 20130316
  5. RETROVIR [Concomitant]
     Indication: PROPHYLAXIS AGAINST HIV INFECTION
     Dosage: UNK
     Route: 064
     Dates: start: 20130315, end: 20130316
  6. SUFENTANIL [Concomitant]
     Indication: EPIDURAL INJECTION
     Dosage: UNK
     Route: 064
     Dates: start: 20130315, end: 20130316
  7. ROPIVACAINE [Concomitant]
     Indication: EPIDURAL INJECTION
     Dosage: UNK
     Route: 064
     Dates: start: 20130315, end: 20130316
  8. SPECIAFOLDINE [Concomitant]
     Indication: VITAMIN SUPPLEMENTATION
     Dosage: UNK
     Dates: start: 2012, end: 20130215

REACTIONS (2)
  - Atrial septal defect [Recovered/Resolved]
  - Atrial septal defect [Recovered/Resolved]
